FAERS Safety Report 11414302 (Version 1)
Quarter: 2015Q3

REPORT INFORMATION
  Report Type: Spontaneous
  Country: US (occurrence: US)
  Receive Date: 20150824
  Receipt Date: 20150824
  Transmission Date: 20151125
  Serious: Yes (Hospitalization)
  Sender: FDA-Public Use
  Company Number: US-IMPAX LABORATORIES, INC-2015-IPXL-00866

PATIENT
  Age: 21 Year
  Sex: Male

DRUGS (3)
  1. OXYCODONE [Suspect]
     Active Substance: OXYCODONE
     Indication: SUBSTANCE USE
     Dosage: 60 MG, DAILY
     Route: 045
  2. OXYMORPHONE HYDROCHLORIDE ER [Suspect]
     Active Substance: OXYMORPHONE HYDROCHLORIDE
     Indication: SUBSTANCE USE
     Dosage: UNK
     Route: 045
  3. OXYMORPHONE HYDROCHLORIDE ER [Suspect]
     Active Substance: OXYMORPHONE HYDROCHLORIDE
     Dosage: 10 MG, DAILY
     Route: 045

REACTIONS (14)
  - Oesophageal rupture [Recovered/Resolved]
  - Acute kidney injury [Recovered/Resolved]
  - Chills [Recovered/Resolved]
  - Drug withdrawal syndrome [Recovered/Resolved]
  - Piloerection [Recovered/Resolved]
  - Nausea [Recovered/Resolved]
  - Vomiting [Recovered/Resolved]
  - Pneumomediastinum [Recovered/Resolved]
  - Hyperhidrosis [Recovered/Resolved]
  - Diarrhoea [Recovered/Resolved]
  - Dyspnoea [Recovered/Resolved]
  - Anxiety [Recovered/Resolved]
  - Rhabdomyolysis [Recovered/Resolved]
  - Delirium [Recovered/Resolved]
